FAERS Safety Report 19894330 (Version 1)
Quarter: 2021Q3

REPORT INFORMATION
  Report Type: Spontaneous
  Country: US (occurrence: US)
  Receive Date: 20210927
  Receipt Date: 20210927
  Transmission Date: 20211014
  Serious: Yes (Disabling, Other)
  Sender: FDA-Public Use
  Company Number: None

PATIENT
  Age: 60 Year
  Sex: Female

DRUGS (1)
  1. TETRACAINE HYDROCHLORIDE OPHTHALMIC SOLUTION USP, 0.5% [Suspect]
     Active Substance: TETRACAINE HYDROCHLORIDE

REACTIONS (5)
  - Eye irritation [None]
  - Pain [None]
  - Corneal erosion [None]
  - Lacrimation increased [None]
  - Eye injury [None]

NARRATIVE: CASE EVENT DATE: 20210925
